FAERS Safety Report 15958109 (Version 1)
Quarter: 2019Q1

REPORT INFORMATION
  Report Type: Spontaneous
  Country: GB (occurrence: GB)
  Receive Date: 20190213
  Receipt Date: 20190213
  Transmission Date: 20190417
  Serious: Yes (Hospitalization, Other)
  Sender: FDA-Public Use
  Company Number: GB-PFIZER INC-2019057129

PATIENT
  Age: 78 Year
  Sex: Male

DRUGS (16)
  1. DOXAZOSIN MESILATE [Suspect]
     Active Substance: DOXAZOSIN MESYLATE
     Dosage: 8 MG, 2X/DAY
     Route: 048
  2. TIOTROPIUM BROMIDE [Suspect]
     Active Substance: TIOTROPIUM BROMIDE
     Dosage: 10 UG, 1X/DAY (QD)
     Route: 055
  3. ASCIMINIB [Suspect]
     Active Substance: ASCIMINIB
     Dosage: 40 MG, ALTERNATE DAY (QOD)
     Route: 048
  4. DULOXETINE. [Suspect]
     Active Substance: DULOXETINE
     Dosage: UNK
     Route: 048
  5. BISOPROLOL FUMARATE. [Suspect]
     Active Substance: BISOPROLOL FUMARATE
     Dosage: 2.5 MG, UNK
     Route: 048
  6. ASCIMINIB [Suspect]
     Active Substance: ASCIMINIB
     Indication: CHRONIC MYELOID LEUKAEMIA
     Dosage: 40 MG, 2X/DAY
     Route: 048
     Dates: start: 20180924
  7. ATORVASTATIN CALCIUM. [Suspect]
     Active Substance: ATORVASTATIN CALCIUM
     Dosage: 40 MG, UNK
     Route: 048
  8. BUMETANIDE. [Suspect]
     Active Substance: BUMETANIDE
     Dosage: 3 MG, 1X/DAY (QD)
     Route: 048
     Dates: start: 201809
  9. METFORMIN HYDROCHLORIDE. [Suspect]
     Active Substance: METFORMIN HYDROCHLORIDE
     Dosage: 500 MG, UNK
     Route: 048
  10. RANITIDINE. [Suspect]
     Active Substance: RANITIDINE
     Dosage: 150 MG, UNK
     Route: 048
  11. SYMBICORT [Suspect]
     Active Substance: BUDESONIDE\FORMOTEROL FUMARATE DIHYDRATE
     Dosage: 2 DF, BID (2 PUFF, BID, TURBOHALER)
     Route: 055
  12. SALBUTAMOL [Suspect]
     Active Substance: ALBUTEROL
     Dosage: 2 DF, UNK (1-2 PUFF)
     Route: 055
  13. ALLOPURINOL. [Suspect]
     Active Substance: ALLOPURINOL
     Dosage: 100 MG, 1X/DAY (QD)
     Route: 048
     Dates: start: 201809
  14. LINAGLIPTIN [Suspect]
     Active Substance: LINAGLIPTIN
     Dosage: 5 MG, 1X/DAY (QD)
     Route: 048
  15. ASPIRIN [ACETYLSALICYLIC ACID] [Suspect]
     Active Substance: ASPIRIN
     Dosage: 75 MG, UNK
     Route: 048
  16. BENDROFLUMETHIAZIDE [Suspect]
     Active Substance: BENDROFLUMETHIAZIDE
     Dosage: 2.5 MG, 1X/DAY (QD)
     Route: 048
     Dates: start: 201809

REACTIONS (2)
  - Renal impairment [Recovering/Resolving]
  - Condition aggravated [Recovering/Resolving]

NARRATIVE: CASE EVENT DATE: 20180927
